FAERS Safety Report 20628616 (Version 11)
Quarter: 2022Q3

REPORT INFORMATION
  Report Type: Report from Study
  Country: US (occurrence: US)
  Receive Date: 20220323
  Receipt Date: 20220720
  Transmission Date: 20221027
  Serious: Yes (Hospitalization, Other)
  Sender: FDA-Public Use
  Company Number: US-JNJFOC-20220243015

PATIENT
  Age: 46 Year
  Sex: Female
  Weight: 50 kg

DRUGS (16)
  1. EPOPROSTENOL SODIUM [Suspect]
     Active Substance: EPOPROSTENOL SODIUM
     Indication: Pulmonary arterial hypertension
     Dosage: VELETRI DOSE 39 NG/KG/MIN
     Dates: end: 20220224
  2. EPOPROSTENOL SODIUM [Suspect]
     Active Substance: EPOPROSTENOL SODIUM
     Indication: Pulmonary hypertension
     Dates: end: 20220329
  3. SELEXIPAG [Suspect]
     Active Substance: SELEXIPAG
     Indication: Pulmonary hypertension
     Route: 048
     Dates: start: 202203
  4. SELEXIPAG [Suspect]
     Active Substance: SELEXIPAG
     Route: 048
  5. SELEXIPAG [Suspect]
     Active Substance: SELEXIPAG
     Route: 048
  6. SELEXIPAG [Suspect]
     Active Substance: SELEXIPAG
     Route: 048
     Dates: start: 202203
  7. SELEXIPAG [Suspect]
     Active Substance: SELEXIPAG
     Route: 048
  8. SELEXIPAG [Suspect]
     Active Substance: SELEXIPAG
     Route: 048
  9. TREPROSTINIL [Suspect]
     Active Substance: TREPROSTINIL
     Indication: Pulmonary hypertension
     Route: 065
     Dates: start: 20220224, end: 202203
  10. TREPROSTINIL [Suspect]
     Active Substance: TREPROSTINIL
     Route: 065
     Dates: end: 20220405
  11. TREPROSTINIL [Suspect]
     Active Substance: TREPROSTINIL
     Route: 048
     Dates: start: 20220223
  12. TREPROSTINIL [Suspect]
     Active Substance: TREPROSTINIL
     Route: 048
  13. TREPROSTINIL [Suspect]
     Active Substance: TREPROSTINIL
     Route: 048
     Dates: end: 20220405
  14. LETAIRIS [Concomitant]
     Active Substance: AMBRISENTAN
  15. ELIQUIS [Concomitant]
     Active Substance: APIXABAN
  16. ADCIRCA [Concomitant]
     Active Substance: TADALAFIL

REACTIONS (17)
  - Vascular device infection [Unknown]
  - Headache [Unknown]
  - Pain [Unknown]
  - Angioedema [Unknown]
  - Pneumonia [Unknown]
  - Gastrointestinal disorder [Unknown]
  - Diarrhoea [Unknown]
  - Nausea [Unknown]
  - Migraine [Not Recovered/Not Resolved]
  - Malaise [Unknown]
  - Feeling abnormal [Unknown]
  - Somnolence [Recovering/Resolving]
  - Back pain [Unknown]
  - Pain in extremity [Not Recovered/Not Resolved]
  - Dyspnoea [Unknown]
  - Nasal congestion [Unknown]
  - Fatigue [Recovering/Resolving]

NARRATIVE: CASE EVENT DATE: 20220301
